FAERS Safety Report 8157509 (Version 3)
Quarter: 2013Q1

REPORT INFORMATION
  Report Type: Spontaneous
  Country: US (occurrence: US)
  Receive Date: 20110927
  Receipt Date: 20130215
  Transmission Date: 20140127
  Serious: Yes (Other)
  Sender: FDA-Public Use
  Company Number: US-ASTRAZENECA-2011SE12654

PATIENT
  Age: 52 Year
  Sex: Female

DRUGS (10)
  1. SEROQUEL [Suspect]
     Route: 048
     Dates: start: 200711
  2. SEROQUEL [Suspect]
     Route: 048
     Dates: start: 2008
  3. AMITRIPTYLINE HCL [Concomitant]
     Dosage: 10 TO 50 MG
     Dates: start: 20100105
  4. CYCLOBENZAPRINE [Concomitant]
     Dates: start: 20100119
  5. ALPRAZOLAM [Concomitant]
     Dates: start: 20100201
  6. DICLOFENAC SODIUM EC [Concomitant]
     Dates: start: 20100311
  7. METHOCARBAMOL [Concomitant]
     Dates: start: 20100312
  8. TRAMADOL HCL [Concomitant]
     Dates: start: 20100607
  9. GABAPENTIN [Concomitant]
     Dates: start: 20100607
  10. PROPOXYPH AND ACETOAMINOPHN [Concomitant]
     Dates: start: 20100618

REACTIONS (3)
  - Pancreatitis [Unknown]
  - Diabetic coma [Unknown]
  - Type 2 diabetes mellitus [Unknown]
